FAERS Safety Report 13754577 (Version 1)
Quarter: 2017Q3

REPORT INFORMATION
  Report Type: Spontaneous
  Country: US (occurrence: US)
  Receive Date: 20170714
  Receipt Date: 20170714
  Transmission Date: 20171127
  Serious: No
  Sender: FDA-Public Use
  Company Number: US-HORIZON-PEN-0307-2017

PATIENT
  Age: 44 Year
  Sex: Male

DRUGS (1)
  1. PENNSAID [Suspect]
     Active Substance: DICLOFENAC SODIUM
     Indication: ARTHROPATHY
     Dosage: 1 GRAM 2/3 TIMES A DAY
     Route: 061
     Dates: start: 20170619, end: 20170619

REACTIONS (4)
  - Application site vesicles [Recovering/Resolving]
  - Off label use [Recovered/Resolved]
  - Application site swelling [Recovering/Resolving]
  - Application site erythema [Recovering/Resolving]

NARRATIVE: CASE EVENT DATE: 20170619
